FAERS Safety Report 17524144 (Version 1)
Quarter: 2020Q1

REPORT INFORMATION
  Report Type: Spontaneous
  Country: ES (occurrence: ES)
  Receive Date: 20200310
  Receipt Date: 20200310
  Transmission Date: 20200409
  Serious: Yes (Hospitalization)
  Sender: FDA-Public Use
  Company Number: ES-MYLANLABS-2020M1025468

PATIENT
  Age: 44 Year
  Sex: Female
  Weight: 52.9 kg

DRUGS (3)
  1. TRASTUZUMAB. [Suspect]
     Active Substance: TRASTUZUMAB
     Indication: INVASIVE DUCTAL BREAST CARCINOMA
     Dosage: UNK UNK, CYCLE, FREQUENCY 6 CYCLE
     Route: 065
     Dates: start: 201107, end: 201111
  2. CAPECITABINE. [Suspect]
     Active Substance: CAPECITABINE
     Indication: INVASIVE DUCTAL BREAST CARCINOMA
     Dosage: UNK UNK, CYCLE, FREQUENCY  18 CYCLE
     Route: 065
     Dates: start: 201111, end: 201111
  3. PACLITAXEL. [Suspect]
     Active Substance: PACLITAXEL
     Indication: INVASIVE DUCTAL BREAST CARCINOMA
     Dosage: UNK UNK, CYCLE, FREQUENCY 18 CYCLES
     Route: 065
     Dates: start: 201111, end: 201304

REACTIONS (7)
  - Staphylococcal bacteraemia [Unknown]
  - Vomiting [Unknown]
  - Diarrhoea [Unknown]
  - Palmar-plantar erythrodysaesthesia syndrome [Unknown]
  - Diastolic dysfunction [Unknown]
  - Toxicity to various agents [Unknown]
  - Asthenia [Unknown]

NARRATIVE: CASE EVENT DATE: 201204
